FAERS Safety Report 20393958 (Version 1)
Quarter: 2022Q1

REPORT INFORMATION
  Report Type: Spontaneous
  Country: US (occurrence: None)
  Receive Date: 20220129
  Receipt Date: 20220129
  Transmission Date: 20220424
  Serious: Yes (Death)
  Sender: FDA-Public Use
  Company Number: US-MICRO LABS LIMITED-ML2022-00267

PATIENT
  Age: 34 Year
  Sex: Male

DRUGS (11)
  1. DIPHENHYDRAMINE HYDROCHLORIDE [Suspect]
     Active Substance: DIPHENHYDRAMINE HYDROCHLORIDE
  2. ETIZOLAM [Suspect]
     Active Substance: ETIZOLAM
  3. FENTANYL [Suspect]
     Active Substance: FENTANYL
  4. ALCOHOL [Suspect]
     Active Substance: ALCOHOL
  5. 6-ACETYLMORPHINE [Suspect]
     Active Substance: 6-ACETYLMORPHINE
  6. CITALOPRAM [Suspect]
     Active Substance: CITALOPRAM HYDROBROMIDE
  7. CODEINE [Suspect]
     Active Substance: CODEINE
  8. HYDROCODONE [Suspect]
     Active Substance: HYDROCODONE
  9. MORPHINE [Suspect]
     Active Substance: MORPHINE
  10. NORFLURAZEPAM [Suspect]
     Active Substance: NORFLURAZEPAM
  11. NORDAZEPAM [Suspect]
     Active Substance: NORDAZEPAM

REACTIONS (5)
  - Toxicity to various agents [Fatal]
  - Unresponsive to stimuli [Fatal]
  - Apnoea [Fatal]
  - Cardiac arrest [Fatal]
  - Drug interaction [Fatal]
